FAERS Safety Report 9291215 (Version 2)
Quarter: 2013Q4

REPORT INFORMATION
  Report Type: Spontaneous
  Country: US (occurrence: US)
  Receive Date: 20130515
  Receipt Date: 20131104
  Transmission Date: 20140711
  Serious: Yes (Hospitalization)
  Sender: FDA-Public Use
  Company Number: US-B.I. PHARMACEUTICALS,INC./RIDGEFIELD-2013-BI-13310BP

PATIENT
  Age: 59 Year
  Sex: Male
  Weight: 77.11 kg

DRUGS (9)
  1. PRADAXA [Suspect]
     Indication: ANTICOAGULANT THERAPY
     Dosage: 150 MG
     Dates: start: 20110222, end: 20111018
  2. PRADAXA [Suspect]
     Indication: ATRIAL FIBRILLATION
  3. QUINAPRIL [Concomitant]
     Dosage: 40 MG
     Dates: start: 2011
  4. TRICOR [Concomitant]
     Dosage: 45 MG
  5. ATENOLOL [Concomitant]
     Dosage: 100 MG
  6. ATIVAN [Concomitant]
     Dosage: 2 MG
  7. MULTAQ [Concomitant]
     Dosage: 400 MG
  8. CRESTOR [Concomitant]
     Dosage: 40 MG
     Dates: start: 2011
  9. SKELAXIN [Concomitant]

REACTIONS (5)
  - Upper gastrointestinal haemorrhage [Unknown]
  - Haematuria [Unknown]
  - Renal failure acute [Unknown]
  - Coagulopathy [Unknown]
  - Haemorrhagic anaemia [Unknown]
